FAERS Safety Report 12631080 (Version 2)
Quarter: 2016Q3

REPORT INFORMATION
  Report Type: Spontaneous
  Country: US (occurrence: US)
  Receive Date: 20160808
  Receipt Date: 20160808
  Transmission Date: 20161109
  Serious: No
  Sender: FDA-Public Use
  Company Number: US-BEH-2015052176

PATIENT
  Sex: Female
  Weight: 63 kg

DRUGS (13)
  1. SPIRONOLACTONE. [Concomitant]
     Active Substance: SPIRONOLACTONE
  2. XYZAL [Concomitant]
     Active Substance: LEVOCETIRIZINE DIHYDROCHLORIDE
  3. ACETAMINOPHEN. [Concomitant]
     Active Substance: ACETAMINOPHEN
  4. LMX [Concomitant]
     Active Substance: LIDOCAINE
  5. DESOGESTREL [Concomitant]
     Active Substance: DESOGESTREL
  6. HIZENTRA [Suspect]
     Active Substance: HUMAN IMMUNOGLOBULIN G
     Indication: IMMUNODEFICIENCY
     Route: 058
  7. EPIPEN [Concomitant]
     Active Substance: EPINEPHRINE
     Indication: ANAPHYLACTIC REACTION
  8. GLUMETZA [Concomitant]
     Active Substance: METFORMIN HYDROCHLORIDE
  9. ASPIRIN. [Concomitant]
     Active Substance: ASPIRIN
  10. MULTIVITAMIN [Concomitant]
     Active Substance: VITAMINS
  11. DIPHENHYDRAMINE. [Concomitant]
     Active Substance: DIPHENHYDRAMINE
  12. SIMVASTATIN. [Concomitant]
     Active Substance: SIMVASTATIN
  13. METHIMAZOLE. [Concomitant]
     Active Substance: METHIMAZOLE

REACTIONS (2)
  - Infusion site swelling [Unknown]
  - Infusion site nodule [Unknown]
